FAERS Safety Report 11734747 (Version 3)
Quarter: 2015Q4

REPORT INFORMATION
  Report Type: Spontaneous
  Country: US (occurrence: US)
  Receive Date: 20151113
  Receipt Date: 20151215
  Transmission Date: 20160304
  Serious: Yes (Life-Threatening)
  Sender: FDA-Public Use
  Company Number: US-PFIZER INC-2015347990

PATIENT
  Age: 81 Year
  Sex: Male
  Weight: 73 kg

DRUGS (13)
  1. NIASPAN [Concomitant]
     Active Substance: NIACIN
     Indication: BLOOD TRIGLYCERIDES INCREASED
  2. SUTENT [Suspect]
     Active Substance: SUNITINIB MALATE
     Indication: RENAL CANCER STAGE IV
     Dosage: 50 MG, CYCLIC (DAILY FOR 3 WEEKS - OFF 1 WEEK, THEN X 2 WEEKS AND OFF 1 WEEK CYCLES))
     Route: 048
     Dates: start: 20150626
  3. LISINOPRIL. [Concomitant]
     Active Substance: LISINOPRIL
     Dosage: 5 MG, AS NEEDED
  4. SUTENT [Suspect]
     Active Substance: SUNITINIB MALATE
     Dosage: 37.5 MG, CYCLIC (37.5 MG AFTER 3RD CYCLE)
  5. ZOCOR [Concomitant]
     Active Substance: SIMVASTATIN
     Indication: HYPERLIPIDAEMIA
     Dosage: 10 MG, ALTERNATE DAY (EVERY OTHER NIGHT)
     Dates: start: 20151025
  6. LISINOPRIL. [Concomitant]
     Active Substance: LISINOPRIL
     Indication: HYPERTENSION
     Dosage: 2.5 MG, AS NEEDED
  7. NIASPAN [Concomitant]
     Active Substance: NIACIN
     Indication: LIPIDS INCREASED
     Dosage: 1 G, ALTERNATE DAY
     Dates: start: 20151026
  8. NIACIN ER [Concomitant]
     Active Substance: NIACIN
     Indication: BLOOD TRIGLYCERIDES INCREASED
     Dosage: 1000 MG, ALTERNATE DAY (EVERY OTHER NIGHT, BED TIME)
  9. NIACIN ER [Concomitant]
     Active Substance: NIACIN
     Indication: LIPIDS INCREASED
     Dosage: 1 G, 1X/DAY (Q OTHER - HS)
     Dates: start: 20151026
  10. COENZIME Q10 [Concomitant]
     Dosage: 200 MG, UNK
  11. VITAMIN C [Concomitant]
     Active Substance: ASCORBIC ACID
     Indication: ANTIOXIDANT THERAPY
     Dosage: 1 G, 2X/DAY
     Dates: start: 1990
  12. VITAMIN B3 [Concomitant]
     Active Substance: NIACIN
     Dosage: UNK
  13. GLYBURIDE. [Concomitant]
     Active Substance: GLYBURIDE
     Indication: TYPE 2 DIABETES MELLITUS
     Dosage: 0.625 MG, AS NEEDED (HALF OF 1.25 MG)

REACTIONS (5)
  - Anaemia megaloblastic [Not Recovered/Not Resolved]
  - Hypoglycaemia [Unknown]
  - Platelet count decreased [Recovering/Resolving]
  - Blood pressure increased [Unknown]
  - Hyperkalaemia [Unknown]
